FAERS Safety Report 4447050-7 (Version None)
Quarter: 2004Q3

REPORT INFORMATION
  Report Type: 
  Country: None (occurrence: None)
  Receive Date: 20040812
  Receipt Date: 20040712
  Transmission Date: 20050211
  Serious: No
  Sender: FDA-Public Use
  Company Number: USA040772352

PATIENT
  Age: 72 Year
  Sex: Male
  Weight: 89 kg

DRUGS (6)
  1. CIALIS [Suspect]
     Indication: ERECTILE DYSFUNCTION
     Dosage: 40 MG DAY
     Dates: start: 20040601
  2. TOPROL-XL [Concomitant]
  3. LANOXIN [Concomitant]
  4. COUMADIN [Concomitant]
  5. LIPITOR [Concomitant]
  6. COZAAR [Concomitant]

REACTIONS (2)
  - DRUG INEFFECTIVE [None]
  - INTENTIONAL OVERDOSE [None]
